FAERS Safety Report 4657817-8 (Version None)
Quarter: 2005Q2

REPORT INFORMATION
  Report Type: 
  Country: None (occurrence: None)
  Receive Date: 20050510
  Receipt Date: 20050428
  Transmission Date: 20051028
  Serious: Yes (Hospitalization)
  Sender: FDA-Public Use
  Company Number: US-KINGPHARMUSA00001-K200500563

PATIENT
  Age: 6 Week
  Sex: Male
  Weight: 4 kg

DRUGS (5)
  1. BREVITAL SODIUM FOR INJECTION [Suspect]
     Indication: GENERAL ANAESTHESIA
     Dosage: 15 MG, UNK
  2. ATROPINE [Suspect]
     Indication: GENERAL ANAESTHESIA
     Dosage: .03 MG, UNK
  3. TRAMADOL [Suspect]
     Indication: GENERAL ANAESTHESIA
     Dosage: 7 MG, UNK
  4. ULTANE [Suspect]
     Indication: MAINTENANCE OF ANAESTHESIA
     Dosage: UNK, UNK
  5. RINGER'S AND DEXTROSE INJECTION [Suspect]
     Dosage: 40 ML, QH
     Route: 042

REACTIONS (6)
  - ANTICHOLINERGIC SYNDROME [None]
  - COMA [None]
  - COUGH [None]
  - DYSKINESIA [None]
  - FREQUENT BOWEL MOVEMENTS [None]
  - SALIVARY HYPERSECRETION [None]
